FAERS Safety Report 8571856-6 (Version None)
Quarter: 2012Q2

REPORT INFORMATION
  Report Type: 
  Country: None (occurrence: None)
  Receive Date: 20120418
  Receipt Date: 20090122
  Transmission Date: 20120825
  Serious: Yes (Other)
  Sender: FDA-Public Use
  Company Number: PHEH2009US10662

PATIENT

DRUGS (1)
  1. DIOVAN HCT [Suspect]
     Dosage: 80 MG, QD

REACTIONS (4)
  - HEART RATE INCREASED [None]
  - CONFUSIONAL STATE [None]
  - DRUG HYPERSENSITIVITY [None]
  - MUSCLE SPASMS [None]
